FAERS Safety Report 8948380 (Version 2)
Quarter: 2013Q1

REPORT INFORMATION
  Report Type: Spontaneous
  Country: US (occurrence: None)
  Receive Date: 20121126
  Receipt Date: 20130129
  Transmission Date: 20140127
  Serious: Yes (Hospitalization)
  Sender: FDA-Public Use
  Company Number: 2012AP004015

PATIENT
  Age: 49 Year
  Sex: Male

DRUGS (4)
  1. CLARITHROMYCIN [Suspect]
     Indication: HELICOBACTER GASTRITIS
     Dosage: 36 HR?
  2. AMOXICILLIN [Suspect]
     Indication: HELICOBACTER GASTRITIS
     Dosage: 36 HR
  3. LANSOPRAZOLE [Suspect]
     Indication: HELICOBACTER GASTRITIS
     Dosage: 36 HR?
  4. OMEPRAZOLE [Concomitant]

REACTIONS (2)
  - Dyskinesia [None]
  - Acute psychosis [None]
